FAERS Safety Report 13042592 (Version 1)
Quarter: 2016Q4

REPORT INFORMATION
  Report Type: Spontaneous
  Country: FR (occurrence: FR)
  Receive Date: 20161219
  Receipt Date: 20161219
  Transmission Date: 20170207
  Serious: Yes (Other)
  Sender: FDA-Public Use
  Company Number: FR-009507513-1612FRA006535

PATIENT
  Age: 41 Year
  Sex: Male

DRUGS (3)
  1. DEXERYL CREAM [Suspect]
     Active Substance: GLYCERIN\PARAFFIN
     Dosage: UNK
     Route: 003
     Dates: start: 20160510
  2. DIPROSONE [Suspect]
     Active Substance: BETAMETHASONE DIPROPIONATE
     Dosage: UNK
     Route: 003
     Dates: start: 20160510
  3. REMICADE [Suspect]
     Active Substance: INFLIXIMAB
     Indication: CROHN^S DISEASE
     Dosage: 400 MG, PER CYCLE. (5 INFUSIONS PERFORMED)
     Route: 042
     Dates: start: 20160315, end: 20160830

REACTIONS (1)
  - Hidradenitis [Unknown]

NARRATIVE: CASE EVENT DATE: 20161025
